FAERS Safety Report 8951582 (Version 1)
Quarter: 2012Q4

REPORT INFORMATION
  Report Type: 
  Country: IT (occurrence: IT)
  Receive Date: 20121204
  Receipt Date: 20121204
  Transmission Date: 20130627
  Serious: Yes (Hospitalization)
  Sender: FDA-Public Use
  Company Number: IT-MYLANLABS-2012S1024347

PATIENT
  Sex: Female

DRUGS (2)
  1. LISINOPRIL [Suspect]
     Indication: PRODUCT USED FOR UNKNOWN INDICATION
  2. FUROSEMIDE [Suspect]
     Indication: PRODUCT USED FOR UNKNOWN INDICATION

REACTIONS (1)
  - Renal failure acute [Not Recovered/Not Resolved]
